FAERS Safety Report 22915654 (Version 6)
Quarter: 2023Q4

REPORT INFORMATION
  Report Type: Report from Study
  Country: CA (occurrence: CA)
  Receive Date: 20230907
  Receipt Date: 20231223
  Transmission Date: 20240110
  Serious: Yes (Hospitalization)
  Sender: FDA-Public Use
  Company Number: CA-MYLANLABS-2023M1061689

PATIENT

DRUGS (1)
  1. HULIO [Suspect]
     Active Substance: ADALIMUMAB-FKJP
     Indication: Ankylosing spondylitis
     Dosage: 40 MILLIGRAM, Q2W (EVERY 2 WEEKS)
     Route: 058
     Dates: start: 20230510

REACTIONS (9)
  - Hospitalisation [Unknown]
  - Illness [Unknown]
  - Fear of injection [Unknown]
  - Product dose omission issue [Unknown]
  - Treatment noncompliance [Unknown]
  - Fatigue [Unknown]
  - Pain [Unknown]
  - Dyspnoea [Unknown]
  - Insomnia [Unknown]
